FAERS Safety Report 5684311-8 (Version None)
Quarter: 2008Q1

REPORT INFORMATION
  Report Type: 
  Country: None (occurrence: None)
  Receive Date: 20080328
  Receipt Date: 20080317
  Transmission Date: 20080703
  Serious: Yes (Hospitalization, Congenital Anomaly)
  Sender: FDA-Public Use
  Company Number: A0690846A

PATIENT
  Sex: Male

DRUGS (3)
  1. PAXIL [Suspect]
     Indication: ANXIETY
     Dosage: 20MG PER DAY
     Dates: start: 20020101, end: 20060901
  2. ANTIHYPERTENSIVE [Concomitant]
     Dates: start: 20050101
  3. VITAMIN TAB [Concomitant]

REACTIONS (5)
  - CONVULSION [None]
  - DRUG EXPOSURE DURING PREGNANCY [None]
  - PERSISTENT FOETAL CIRCULATION [None]
  - PREMATURE BABY [None]
  - RESPIRATORY FAILURE [None]
